FAERS Safety Report 6427942-X (Version None)
Quarter: 2009Q4

REPORT INFORMATION
  Report Type: 
  Country: None (occurrence: None)
  Receive Date: 20091105
  Receipt Date: 20091022
  Transmission Date: 20100525
  Serious: Yes (Other)
  Sender: FDA-Public Use
  Company Number: PHHY2009CL46019

PATIENT
  Age: 72 Year
  Sex: Male

DRUGS (7)
  1. GLEEVEC [Suspect]
     Dosage: UNK
     Dates: start: 20040310
  2. GLEEVEC [Suspect]
     Dosage: 200 MG, QD
     Route: 048
     Dates: start: 20040901, end: 20041101
  3. GLEEVEC [Suspect]
     Dosage: 300 MG, QD
     Route: 048
     Dates: start: 20041201
  4. GLEEVEC [Suspect]
     Dosage: 300 MG, QD
     Route: 048
     Dates: end: 20050201
  5. GLEEVEC [Suspect]
     Dosage: 400 MG, QD
     Route: 048
     Dates: end: 20050601
  6. GLEEVEC [Suspect]
     Dosage: UNK
     Route: 048
     Dates: end: 20050801
  7. GLEEVEC [Suspect]
     Dosage: 300 MG, QD
     Route: 048

REACTIONS (11)
  - DIZZINESS [None]
  - LEUKOPENIA [None]
  - NAUSEA [None]
  - PANCYTOPENIA [None]
  - PRURITUS [None]
  - RASH PAPULAR [None]
  - RESPIRATORY TRACT INFECTION VIRAL [None]
  - SKIN EXFOLIATION [None]
  - STASIS DERMATITIS [None]
  - THROMBOCYTOPENIA [None]
  - VOMITING [None]
